FAERS Safety Report 7921326-0 (Version None)
Quarter: 2011Q4

REPORT INFORMATION
  Report Type: 
  Country: None (occurrence: None)
  Receive Date: 20111117
  Receipt Date: 20111107
  Transmission Date: 20120403
  Serious: Yes (Other)
  Sender: FDA-Public Use
  Company Number: US-BAYER-201039302NA

PATIENT
  Age: 28 Year
  Sex: Female
  Weight: 90.703 kg

DRUGS (9)
  1. HYDROCHLOROTHIAZIDE [Concomitant]
  2. ALBUTEROL [Concomitant]
  3. MAXZIDE [Concomitant]
     Dosage: 25 MG, UNK
     Route: 048
  4. YAZ [Suspect]
     Indication: MENSTRUATION IRREGULAR
     Dosage: UNK UNK, UNK
     Route: 048
     Dates: start: 20060601, end: 20090101
  5. LISINOPRIL [Concomitant]
  6. LORTAB [Concomitant]
     Indication: PAIN
     Dosage: 5 MG, PRN
     Route: 048
  7. MIDRID [ISOMETHEPTENE MUCATE,PARACETAMOL] [Concomitant]
  8. YASMIN [Suspect]
     Indication: MENSTRUATION IRREGULAR
     Dosage: UNK UNK, UNK
     Route: 048
     Dates: start: 20060601, end: 20090101
  9. ADVAIR DISKUS 100/50 [Concomitant]
     Dosage: UNK UNK, PRN

REACTIONS (2)
  - CHOLECYSTITIS CHRONIC [None]
  - CHOLELITHIASIS [None]
